FAERS Safety Report 9503037 (Version 1)
Quarter: 2013Q1

REPORT INFORMATION
  Report Type: Spontaneous
  Country: US (occurrence: None)
  Receive Date: 20130225
  Receipt Date: 20130225
  Transmission Date: 20140127
  Serious: Yes (Other)
  Sender: FDA-Public Use
  Company Number: 366942

PATIENT
  Age: 57 Year
  Sex: Male
  Weight: 108.8 kg

DRUGS (5)
  1. VICTOZA (LIRAGLUTIDE) SOLUTION FOR INJECTION, 6MG/ML [Suspect]
     Indication: TYPE 2 DIABETES MELLITUS
     Dosage: 0.6 MG QD, SUBCUTANEOUS
     Route: 058
     Dates: start: 20121025, end: 20121101
  2. FISH OIL (FISH OIL) [Concomitant]
  3. LISINOPRIL (LISINOPRIL) [Concomitant]
  4. METFORMIN (METFORMIN) [Concomitant]
  5. SIMVASTATIN (SIMVASTATIN) [Concomitant]

REACTIONS (1)
  - Pancreatitis acute [None]
